FAERS Safety Report 23841793 (Version 1)
Quarter: 2024Q2

REPORT INFORMATION
  Report Type: Spontaneous
  Country: US (occurrence: None)
  Receive Date: 20240509
  Receipt Date: 20240509
  Transmission Date: 20240716
  Serious: Yes (Life-Threatening)
  Sender: FDA-Public Use
  Company Number: None

PATIENT
  Age: 75 Year
  Sex: Female
  Weight: 99.45 kg

DRUGS (10)
  1. JARDIANCE [Suspect]
     Active Substance: EMPAGLIFLOZIN
     Indication: Glycosylated haemoglobin increased
     Dosage: OTHER QUANTITY : 1 TABLET(S);?
     Route: 048
     Dates: start: 20240422, end: 20240430
  2. Metaprol [Concomitant]
  3. ISOSORBIDE MONONITRATE [Concomitant]
     Active Substance: ISOSORBIDE MONONITRATE
  4. Calcitrool [Concomitant]
  5. AMLODIPINE [Concomitant]
  6. Aspirin [Concomitant]
  7. LISINOPRIL [Concomitant]
     Active Substance: LISINOPRIL
  8. Homology [Concomitant]
  9. Insulin Glargin-yfgn [Concomitant]
  10. VICTOZA [Concomitant]
     Active Substance: LIRAGLUTIDE

REACTIONS (8)
  - Blood urea increased [None]
  - Blood creatinine increased [None]
  - Glomerular filtration rate decreased [None]
  - Abdominal pain [None]
  - Neck pain [None]
  - Oropharyngeal pain [None]
  - Headache [None]
  - Muscle tightness [None]

NARRATIVE: CASE EVENT DATE: 20240429
